FAERS Safety Report 9301575 (Version 1)
Quarter: 2013Q2

REPORT INFORMATION
  Report Type: Spontaneous
  Country: US (occurrence: None)
  Receive Date: 20130520
  Receipt Date: 20130520
  Transmission Date: 20140414
  Serious: No
  Sender: FDA-Public Use
  Company Number: None

PATIENT
  Age: 71 Year
  Sex: Female
  Weight: 56.7 kg

DRUGS (2)
  1. LEVOTHYROXINE SODIUM [Suspect]
     Indication: THYROID DISORDER
     Dosage: 2 ONCE A DAY PO
     Route: 048
     Dates: start: 20121217, end: 20130508
  2. LEVOTHYROXINE SODIUM [Suspect]
     Indication: THYROID CANCER
     Dosage: 2 ONCE A DAY PO
     Route: 048
     Dates: start: 20121217, end: 20130508

REACTIONS (3)
  - Blood thyroid stimulating hormone increased [None]
  - Feeling abnormal [None]
  - Product quality issue [None]
